FAERS Safety Report 21025553 (Version 9)
Quarter: 2022Q4

REPORT INFORMATION
  Report Type: Spontaneous
  Country: CA (occurrence: CA)
  Receive Date: 20220630
  Receipt Date: 20221110
  Transmission Date: 20230113
  Serious: Yes (Other)
  Sender: FDA-Public Use
  Company Number: CA-CELLTRION INC.-2021CA010245

PATIENT

DRUGS (15)
  1. INFLECTRA [Suspect]
     Active Substance: INFLIXIMAB-DYYB
     Indication: Crohn^s disease
     Dosage: 5 MG/KG 0, 2, 6 THEN EVERY 8 WEEKS
     Route: 042
     Dates: start: 20210608
  2. INFLECTRA [Suspect]
     Active Substance: INFLIXIMAB-DYYB
     Dosage: 5 MG/KG 0, 2, 6 THEN EVERY 8 WEEKS
     Route: 042
     Dates: start: 20210622
  3. INFLECTRA [Suspect]
     Active Substance: INFLIXIMAB-DYYB
     Dosage: 5 MG/KG 0, 2, 6 THEN EVERY 8 WEEKS
     Route: 042
     Dates: start: 20210722
  4. INFLECTRA [Suspect]
     Active Substance: INFLIXIMAB-DYYB
     Dosage: 5MG/KG 0, 2, 6 THEN EVERY 8 WEEKS
     Route: 042
     Dates: start: 20210806
  5. INFLECTRA [Suspect]
     Active Substance: INFLIXIMAB-DYYB
     Dosage: 5 MG/KG 0, 2, 6 THEN EVERY 8 WEEKS
     Route: 042
     Dates: start: 20210915
  6. INFLECTRA [Suspect]
     Active Substance: INFLIXIMAB-DYYB
     Dosage: 5 MG/KG 0, 2, 6 THEN EVERY 8 WEEKS
     Route: 042
     Dates: start: 20211109
  7. INFLECTRA [Suspect]
     Active Substance: INFLIXIMAB-DYYB
     Dosage: 5 MG/KG 0, 2, 6 THEN EVERY 8 WEEKS
     Route: 042
     Dates: start: 20220114
  8. INFLECTRA [Suspect]
     Active Substance: INFLIXIMAB-DYYB
     Dosage: 5 MG/KG 0, 2, 6 THEN EVERY 8 WEEKS
     Route: 042
     Dates: start: 20220310
  9. INFLECTRA [Suspect]
     Active Substance: INFLIXIMAB-DYYB
     Dosage: 10 MG/KG EVERY 4 WEEK
     Route: 042
     Dates: start: 20220412
  10. INFLECTRA [Suspect]
     Active Substance: INFLIXIMAB-DYYB
     Dosage: 10 MG/KG EVERY 4 WEEK
     Route: 042
     Dates: start: 20220412
  11. INFLECTRA [Suspect]
     Active Substance: INFLIXIMAB-DYYB
     Dosage: 10 MG/KG EVERY 4 WEEK
     Route: 042
     Dates: start: 20220511
  12. AZATHIOPRINE [Concomitant]
     Active Substance: AZATHIOPRINE
     Dosage: 1 DF
  13. CYCLOBENZAPRINE [Concomitant]
     Active Substance: CYCLOBENZAPRINE
     Dosage: 1 DF, AS NEEDED DOSAGE NOT AVAILABLE
     Route: 065
  14. NYSTATIN [Concomitant]
     Active Substance: NYSTATIN
     Indication: Oral infection
     Dosage: 1 DF DOSAGE NOT AVAILABLE
     Route: 065
  15. CHOLESTYRAMINE [Concomitant]
     Active Substance: CHOLESTYRAMINE
     Dosage: 1 DF DOSAGE NOT AVAILABLE
     Route: 065
     Dates: start: 20210505

REACTIONS (33)
  - Root canal infection [Recovering/Resolving]
  - Ileectomy [Unknown]
  - Drug ineffective [Unknown]
  - Condition aggravated [Recovering/Resolving]
  - Mouth ulceration [Not Recovered/Not Resolved]
  - Dermatitis acneiform [Not Recovered/Not Resolved]
  - Fistula [Unknown]
  - Weight increased [Unknown]
  - Acne [Recovering/Resolving]
  - Arthralgia [Not Recovered/Not Resolved]
  - Arthralgia [Unknown]
  - Oedema peripheral [Not Recovered/Not Resolved]
  - Rash [Recovered/Resolved]
  - Pruritus [Recovered/Resolved]
  - Skin disorder [Not Recovered/Not Resolved]
  - Productive cough [Not Recovered/Not Resolved]
  - Night sweats [Not Recovered/Not Resolved]
  - Conjunctivitis [Not Recovered/Not Resolved]
  - Suspected COVID-19 [Not Recovered/Not Resolved]
  - Fatigue [Not Recovered/Not Resolved]
  - Nasopharyngitis [Unknown]
  - Hypertension [Unknown]
  - Diarrhoea [Not Recovered/Not Resolved]
  - Nausea [Not Recovered/Not Resolved]
  - Aphthous ulcer [Unknown]
  - Weight decreased [Unknown]
  - Toothache [Not Recovered/Not Resolved]
  - Dyspepsia [Not Recovered/Not Resolved]
  - Articular calcification [Not Recovered/Not Resolved]
  - Pain [Recovering/Resolving]
  - Off label use [Unknown]
  - Off label use [Unknown]
  - Intentional product use issue [Unknown]

NARRATIVE: CASE EVENT DATE: 20210701
